FAERS Safety Report 23551209 (Version 1)
Quarter: 2024Q1

REPORT INFORMATION
  Report Type: Spontaneous
  Country: PT (occurrence: PT)
  Receive Date: 20240222
  Receipt Date: 20240222
  Transmission Date: 20240410
  Serious: Yes (Hospitalization, Other)
  Sender: FDA-Public Use
  Company Number: PT-ROCHE-2468178

PATIENT
  Age: 43 Year
  Sex: Female

DRUGS (17)
  1. CAPECITABINE [Suspect]
     Active Substance: CAPECITABINE
     Indication: HER2 positive breast cancer
     Route: 048
     Dates: start: 20190226
  2. CAPECITABINE [Suspect]
     Active Substance: CAPECITABINE
     Indication: HER2 positive breast cancer
     Dosage: 50 MG 4 TIMES/DAY
     Route: 048
     Dates: start: 20190226
  3. PERTUZUMAB [Suspect]
     Active Substance: PERTUZUMAB
     Indication: HER2 positive breast cancer
     Dosage: MOST RECENT DOSE OF PERTUZUMAB: 30/NOV/2018
     Route: 042
     Dates: start: 20180918
  4. TRASTUZUMAB [Suspect]
     Active Substance: TRASTUZUMAB
     Indication: HER2 positive breast cancer
     Route: 058
     Dates: start: 20180918, end: 20181130
  5. ADO-TRASTUZUMAB EMTANSINE [Suspect]
     Active Substance: ADO-TRASTUZUMAB EMTANSINE
     Indication: HER2 positive breast cancer
     Dosage: MOST RECENT DOSE OF CAPACITABINE: 04/FEB/2019
     Route: 042
     Dates: start: 20181218
  6. VINORELBINE [Suspect]
     Active Substance: VINORELBINE TARTRATE
     Indication: HER2 positive breast cancer
     Dosage: MOST RECENT DOSE OF VINORELBINE 30/NOV/2018
     Route: 042
     Dates: start: 20180918
  7. LAPATINIB [Suspect]
     Active Substance: LAPATINIB
     Indication: HER2 positive breast cancer
     Route: 048
     Dates: start: 20190316
  8. TAPENTADOL [Concomitant]
     Active Substance: TAPENTADOL
     Dosage: ONGOING = CHECKED
  9. PERINDOPRIL [Concomitant]
     Active Substance: PERINDOPRIL
     Dosage: ONGOING = CHECKED
     Dates: start: 20190828
  10. AMLODIPINE [Concomitant]
     Active Substance: AMLODIPINE BESYLATE
     Dosage: ONGOING = CHECKED
     Dates: start: 20190828
  11. TRAMADOL [Concomitant]
     Active Substance: TRAMADOL\TRAMADOL HYDROCHLORIDE
     Dosage: ONGOING = CHECKED
     Dates: start: 20190122
  12. METAMIZOLE [Concomitant]
     Active Substance: METAMIZOLE
     Dosage: ONGOING = CHECKED
     Dates: start: 20190122
  13. FLUCLOXACILLIN [Concomitant]
     Active Substance: FLUCLOXACILLIN
     Dosage: ONGOING = CHECKED
     Dates: start: 20190122
  14. METOCLOPRAMIDE [Concomitant]
     Active Substance: METOCLOPRAMIDE
     Dosage: ONGOING = CHECKED
     Dates: start: 20190719
  15. FENTANYL [Concomitant]
     Active Substance: FENTANYL\FENTANYL CITRATE
     Dosage: ONGOING = CHECKED
  16. EDOXABAN [Concomitant]
     Active Substance: EDOXABAN
     Dates: start: 20190828
  17. MORPHINE SULFATE [Concomitant]
     Active Substance: MORPHINE SULFATE
     Dates: start: 20190828

REACTIONS (2)
  - Subclavian vein thrombosis [Recovered/Resolved]
  - Paraneoplastic pleural effusion [Recovered/Resolved]

NARRATIVE: CASE EVENT DATE: 20190826
